FAERS Safety Report 20615233 (Version 2)
Quarter: 2022Q1

REPORT INFORMATION
  Report Type: Spontaneous
  Country: US (occurrence: US)
  Receive Date: 20220321
  Receipt Date: 20220330
  Transmission Date: 20220424
  Serious: Yes (Hospitalization)
  Sender: FDA-Public Use
  Company Number: US-SAREPTA THERAPEUTICS INC.-SRP2022-002067

PATIENT
  Age: 24 Year
  Sex: Male
  Weight: 72.562 kg

DRUGS (14)
  1. EXONDYS 51 [Suspect]
     Active Substance: ETEPLIRSEN
     Indication: Duchenne muscular dystrophy
     Dosage: 2500 MILLIGRAM, WEEKLY
     Route: 042
     Dates: start: 20210528, end: 20211103
  2. EXONDYS 51 [Suspect]
     Active Substance: ETEPLIRSEN
     Dosage: 2300 MILLIGRAM, WEEKLY
     Dates: start: 20211103
  3. METOPROLOL TARTRATE [Concomitant]
     Active Substance: METOPROLOL TARTRATE
     Indication: Product used for unknown indication
     Dosage: 50 MILLIGRAM, BID
     Route: 048
     Dates: start: 20220201
  4. MONTELUKAST SODIUM [Concomitant]
     Active Substance: MONTELUKAST SODIUM
     Indication: Product used for unknown indication
     Dosage: 10 MILLIGRAM, QD
     Route: 048
     Dates: start: 20211201
  5. AZELASTINE HYDROCHLORIDE [Concomitant]
     Active Substance: AZELASTINE HYDROCHLORIDE
     Indication: Product used for unknown indication
     Dosage: 1 SPRAYS, BILATERAL SNARES, EVERY NIGHT AT BEDTIME
     Route: 045
     Dates: start: 20211103
  6. ALDACTONE [Concomitant]
     Active Substance: SPIRONOLACTONE
     Indication: Product used for unknown indication
     Dosage: 25 MILLIGRAM, QD
     Route: 048
     Dates: start: 20210922
  7. LISINOPRIL [Concomitant]
     Active Substance: LISINOPRIL
     Indication: Product used for unknown indication
     Dosage: 10 MILLIGRAM, QD
     Route: 048
     Dates: start: 20210528, end: 20210721
  8. LISINOPRIL [Concomitant]
     Active Substance: LISINOPRIL
     Dosage: 15 MILLIGRAM, QD
     Route: 048
     Dates: start: 20210722
  9. ALBUTEROL SULFATE [Concomitant]
     Active Substance: ALBUTEROL SULFATE
     Indication: Wheezing
     Dosage: 2 PUFFS, PRN Q6HR
     Dates: start: 20210528
  10. VITAMIN D3 [Concomitant]
     Active Substance: CHOLECALCIFEROL
     Indication: Product used for unknown indication
     Dosage: 2000 U, QD
     Route: 048
     Dates: start: 20210528
  11. ZOFRAN [Concomitant]
     Active Substance: ONDANSETRON HYDROCHLORIDE
     Indication: Prophylaxis of nausea and vomiting
     Dosage: UNK
  12. CLARITIN [Concomitant]
     Active Substance: LORATADINE
     Indication: Hypersensitivity
     Dosage: 10 MILLIGRAM, QD PRN
     Route: 048
     Dates: start: 20210528
  13. METOPROLOL SUCCINATE [Concomitant]
     Active Substance: METOPROLOL SUCCINATE
     Indication: Product used for unknown indication
     Dosage: 100 MILLIGRAM, QD
     Route: 048
     Dates: start: 20210528, end: 20220201
  14. MIRALAX [Concomitant]
     Active Substance: POLYETHYLENE GLYCOL 3350
     Indication: Constipation
     Dosage: 17 GRAM, PRN EVERY 2 DAYS
     Route: 048
     Dates: start: 20210827

REACTIONS (10)
  - COVID-19 [Unknown]
  - Sepsis [Unknown]
  - Acute respiratory failure [Unknown]
  - COVID-19 pneumonia [Unknown]
  - Shock [Unknown]
  - Hypotension [Not Recovered/Not Resolved]
  - Migraine [Unknown]
  - Musculoskeletal disorder [Unknown]
  - Mobility decreased [Unknown]
  - Product dose omission issue [Unknown]

NARRATIVE: CASE EVENT DATE: 20220120
